FAERS Safety Report 21164736 (Version 1)
Quarter: 2022Q3

REPORT INFORMATION
  Report Type: Other
  Country: IT (occurrence: None)
  Receive Date: 20220803
  Receipt Date: 20220803
  Transmission Date: 20221027
  Serious: Yes (Other)
  Sender: FDA-Public Use
  Company Number: IT-ROCHE-3016515

PATIENT
  Age: 32 Year
  Sex: Male

DRUGS (2)
  1. EMICIZUMAB [Suspect]
     Active Substance: EMICIZUMAB
     Indication: Factor VIII deficiency
     Dosage: FOR 4 WEEKS
     Route: 065
  2. EMICIZUMAB [Suspect]
     Active Substance: EMICIZUMAB
     Dosage: FOR 2 WEEKS
     Route: 065

REACTIONS (4)
  - Haemarthrosis [Unknown]
  - Drug specific antibody present [Recovered/Resolved]
  - Treatment failure [Unknown]
  - Haematoma muscle [Unknown]
